FAERS Safety Report 8820938 (Version 1)
Quarter: 2012Q4

REPORT INFORMATION
  Report Type: Report from Study
  Country: CA (occurrence: CA)
  Receive Date: 20121002
  Receipt Date: 20121002
  Transmission Date: 20130627
  Serious: Yes (Death, Other)
  Sender: FDA-Public Use
  Company Number: CA-ROCHE-1136259

PATIENT
  Sex: Male
  Weight: 59.02 kg

DRUGS (9)
  1. MABTHERA [Suspect]
     Indication: RHEUMATOID ARTHRITIS
     Route: 042
     Dates: start: 20120131, end: 20120829
  2. ARAVA [Concomitant]
  3. PREDNISONE [Concomitant]
  4. RAMIPRIL [Concomitant]
  5. AMLODIPINE [Concomitant]
  6. PERCOCET [Concomitant]
  7. OXYCONTIN [Concomitant]
  8. NABILONE [Concomitant]
  9. NORTRIPTYLINE [Concomitant]

REACTIONS (1)
  - Death [Fatal]
